FAERS Safety Report 9664671 (Version 1)
Quarter: 2013Q4

REPORT INFORMATION
  Report Type: Report from Study
  Country: US (occurrence: US)
  Receive Date: 20131101
  Receipt Date: 20131101
  Transmission Date: 20140711
  Serious: Yes (Death)
  Sender: FDA-Public Use
  Company Number: US-BRISTOL-MYERS SQUIBB COMPANY-19705540

PATIENT
  Age: 69 Year
  Sex: Male
  Weight: 70.4 kg

DRUGS (24)
  1. NIVOLUMAB [Suspect]
     Indication: NON-SMALL CELL LUNG CANCER
     Dosage: EVERY 2 WEEKS FOR THE FIRST 4 WEEKS AND THEN 3MG/KG
     Route: 042
     Dates: start: 20130719, end: 20131025
  2. IPILIMUMAB [Suspect]
     Indication: NON-SMALL CELL LUNG CANCER
     Route: 042
     Dates: start: 20130719, end: 20130920
  3. PROAIR HFA [Concomitant]
     Dosage: DOSAGE:INHALE 2PUFFS INTO THE LUNGS EVERY4HRS/PRN
     Route: 055
  4. XANAX [Concomitant]
     Dosage: DOSAGE:0.25MG 3TIMES DAILY/PRN
     Route: 048
     Dates: start: 2004
  5. ASPIRIN [Concomitant]
     Route: 048
     Dates: start: 2003
  6. TUMS [Concomitant]
     Dosage: CHEWABLE TAB
     Route: 048
     Dates: start: 2004
  7. ZETIA [Concomitant]
     Dosage: TABLET
     Route: 048
  8. FLONASE [Concomitant]
     Dosage: DOSAGE:SPRAY SUSPENSION, 1 SPRAY
     Route: 045
  9. NEURONTIN [Concomitant]
     Dosage: CAPS?DOSAGE:2 TIMES/DAY(0800,1800)
     Route: 048
  10. ROBITUSSIN [Concomitant]
     Dosage: 1 DF:100MG/5 ML?DOSAGE:EVERY 4HRS/PRN
     Route: 048
  11. VICODIN [Concomitant]
     Dosage: 1 DF:5-500MG,1 TAB, EVERY6HRS/PRN?TABLET
     Route: 048
     Dates: start: 2006
  12. TOPROL XL [Concomitant]
     Dosage: DOSAGE:TABLET SUSTAINED RELEASE 24HR
     Route: 048
     Dates: start: 20111120
  13. MULTIVITAMIN [Concomitant]
     Dosage: 1 DF:1 CAPS
     Route: 048
     Dates: start: 20120712
  14. SUDAFED [Concomitant]
     Dosage: TABLET
     Route: 048
     Dates: start: 20130201
  15. SENOKOT [Concomitant]
     Dosage: DOSAGE:1 TAB/NIGHTLY PRN
     Route: 048
  16. DIOVAN [Concomitant]
     Dosage: TABLET
     Route: 048
     Dates: start: 2008
  17. AMBIEN [Concomitant]
     Dosage: DOSAGE:NIGHTLY/PRN,TABLET
     Route: 048
  18. EZETIMIBE [Concomitant]
     Dates: start: 2008
  19. GABAPENTIN [Concomitant]
     Dates: start: 20091117
  20. METOPROLOL [Concomitant]
     Dates: start: 201110
  21. ZOLPIDEM [Concomitant]
     Dates: start: 2006
  22. SENNA [Concomitant]
     Dates: start: 20091117
  23. ALBUTEROL [Concomitant]
     Dates: start: 2004
  24. ALPRAZOLAM [Concomitant]
     Dosage: DOSAGE:3/DAY PRN
     Dates: start: 2004

REACTIONS (1)
  - Pulmonary haemorrhage [Fatal]
